FAERS Safety Report 8211400-6 (Version None)
Quarter: 2012Q1

REPORT INFORMATION
  Report Type: 
  Country: None (occurrence: None)
  Receive Date: 20120315
  Receipt Date: 20120309
  Transmission Date: 20120608
  Serious: Yes (Hospitalization)
  Sender: FDA-Public Use
  Company Number: US-PFIZER INC-2012064720

PATIENT
  Sex: Male

DRUGS (1)
  1. SUTENT [Suspect]
     Indication: RENAL CELL CARCINOMA
     Dosage: 50 MG, UNK
     Route: 048
     Dates: start: 20120213, end: 20120303

REACTIONS (5)
  - NAUSEA [None]
  - ASTHENIA [None]
  - PLEURAL EFFUSION [None]
  - DYSPNOEA [None]
  - VOMITING [None]
